FAERS Safety Report 20746021 (Version 1)
Quarter: 2022Q2

REPORT INFORMATION
  Report Type: Spontaneous
  Country: US (occurrence: US)
  Receive Date: 20220425
  Receipt Date: 20220425
  Transmission Date: 20220721
  Serious: No
  Sender: FDA-Public Use
  Company Number: US-MIRM-000277

PATIENT
  Age: 16 Year
  Sex: Female

DRUGS (8)
  1. LIVMARLI [Suspect]
     Active Substance: MARALIXIBAT CHLORIDE
     Indication: Pruritus
     Dosage: MEDICATION WAS LABELLED AS ^ONCE DAILY^ BUT PATIENT WAS TAKING 2 TIMES A DAY
     Route: 048
     Dates: start: 20211230
  2. 1328878 (GLOBALC3Sep19): Vitamin E [Concomitant]
     Indication: Product used for unknown indication
  3. 1268236 (GLOBALC3Sep19): Omeprazole [Concomitant]
     Indication: Product used for unknown indication
  4. 1328777 (GLOBALC3Sep19): Ursodiol [Concomitant]
     Indication: Product used for unknown indication
  5. 1327788 (GLOBALC3Sep19): Phytonadione [Concomitant]
     Indication: Product used for unknown indication
  6. 1328870 (GLOBALC3Sep19): Vitamin D [Concomitant]
     Indication: Product used for unknown indication
  7. 2788054 (GLOBALC3Sep19): Naltrexone HCL [Concomitant]
     Indication: Product used for unknown indication
  8. 1326420 (GLOBALC3Sep19): Ibuprofen [Concomitant]
     Indication: Product used for unknown indication

REACTIONS (2)
  - Overdose [Unknown]
  - Inappropriate schedule of product administration [Unknown]

NARRATIVE: CASE EVENT DATE: 20211230
